FAERS Safety Report 24534043 (Version 1)
Quarter: 2024Q4

REPORT INFORMATION
  Report Type: Spontaneous
  Country: US (occurrence: US)
  Receive Date: 20241022
  Receipt Date: 20241022
  Transmission Date: 20250114
  Serious: No
  Sender: ABBVIE
  Company Number: US-ABBVIE-5972985

PATIENT

DRUGS (2)
  1. LATISSE [Suspect]
     Active Substance: BIMATOPROST
     Indication: Product used for unknown indication
     Dosage: DOSAGE: 3 ML, FORM STRENGTH: 0.03 PERCENT
     Route: 061
  2. LATISSE [Suspect]
     Active Substance: BIMATOPROST
     Dosage: DOSAGE: 3 ML, FORM STRENGTH: 0.03 PERCENT
     Route: 061

REACTIONS (1)
  - Product dispensing error [Not Recovered/Not Resolved]
